FAERS Safety Report 9615596 (Version 1)
Quarter: 2013Q4

REPORT INFORMATION
  Report Type: Spontaneous
  Country: US (occurrence: None)
  Receive Date: 20131010
  Receipt Date: 20131010
  Transmission Date: 20140711
  Serious: Yes (Other)
  Sender: FDA-Public Use
  Company Number: None

PATIENT
  Age: 9 Year
  Sex: Male
  Weight: 28.12 kg

DRUGS (1)
  1. VYVANSE [Suspect]
     Indication: ATTENTION DEFICIT/HYPERACTIVITY DISORDER
     Dosage: 1 PILL BEFORE 10AM, ONCE DAILY, TAKEN BY MOUTH
     Route: 048
     Dates: start: 20130928, end: 20131007

REACTIONS (3)
  - Rash [None]
  - Urticaria [None]
  - Pruritus [None]
